FAERS Safety Report 18076123 (Version 1)
Quarter: 2020Q3

REPORT INFORMATION
  Report Type: Other
  Country: ES (occurrence: ES)
  Receive Date: 20200728
  Receipt Date: 20200728
  Transmission Date: 20201103
  Serious: Yes (Life-Threatening, Other)
  Sender: FDA-Public Use
  Company Number: ES-ASTELLAS-2020US024887

PATIENT
  Age: 52 Year
  Sex: Male

DRUGS (13)
  1. CALCIFEDIOL [Concomitant]
     Active Substance: CALCIFEDIOL
     Indication: LIVER TRANSPLANT
     Dosage: 0.26 MG, UNKNOWN FREQ.
     Route: 048
     Dates: start: 20181030
  2. EUTIROX [Concomitant]
     Active Substance: LEVOTHYROXINE SODIUM
     Indication: HYPOTHYROIDISM
     Route: 048
     Dates: start: 20161206
  3. TOUJEO [Concomitant]
     Active Substance: INSULIN GLARGINE
     Indication: TYPE 2 DIABETES MELLITUS
     Route: 058
     Dates: start: 20170411
  4. ADVAGRAF [Suspect]
     Active Substance: TACROLIMUS
     Indication: LIVER TRANSPLANT
     Dosage: 5 MG, ONCE DAILY (EVERY 24 HOURS)
     Route: 048
     Dates: start: 20191123
  5. GEMFIBROZILO [Concomitant]
     Active Substance: GEMFIBROZIL
     Indication: LIVER INJURY
     Route: 048
     Dates: start: 20191122
  6. ACTRAPID [Concomitant]
     Active Substance: INSULIN HUMAN
     Indication: TYPE 2 DIABETES MELLITUS
     Dosage: 12 IU, 4 TIMES DAILY (EVERY 6 HOURS)
     Route: 058
     Dates: start: 20160802
  7. ENTECAVIR. [Concomitant]
     Active Substance: ENTECAVIR
     Indication: ARTHRITIS BACTERIAL
     Dosage: 0.5 MG, ONCE DAILY
     Route: 048
     Dates: start: 20190913
  8. URSODEOXYCHOLIC ACID [Concomitant]
     Active Substance: URSODIOL
     Indication: ARTHRITIS BACTERIAL
     Route: 048
     Dates: start: 20191122
  9. FUROSEMIDA [FUROSEMIDE] [Concomitant]
     Active Substance: FUROSEMIDE
     Indication: SLEEP APNOEA SYNDROME
     Route: 048
     Dates: start: 20190206
  10. CLOMETIAZOL [Concomitant]
     Active Substance: CLOMETHIAZOLE
     Indication: PERSISTENT DEPRESSIVE DISORDER
     Route: 048
     Dates: start: 20170112
  11. ADVAGRAF [Suspect]
     Active Substance: TACROLIMUS
     Indication: LIVER TRANSPLANT
     Dosage: 3 MG, TWICE DAILY (EVERY 12 HOURS)
     Route: 048
     Dates: start: 20191123
  12. DESLORATADINA [Concomitant]
     Active Substance: DESLORATADINE
     Indication: HYPERSENSITIVITY
     Route: 048
     Dates: start: 20190206
  13. KREON 10 000 [Concomitant]
     Active Substance: PANCRELIPASE
     Indication: TYPE 2 DIABETES MELLITUS
     Route: 048
     Dates: start: 20121106

REACTIONS (1)
  - Altered state of consciousness [Recovered/Resolved]

NARRATIVE: CASE EVENT DATE: 20191126
